FAERS Safety Report 21491367 (Version 6)
Quarter: 2023Q1

REPORT INFORMATION
  Report Type: Spontaneous
  Country: US (occurrence: US)
  Receive Date: 20221021
  Receipt Date: 20230118
  Transmission Date: 20230417
  Serious: Yes (Other)
  Sender: FDA-Public Use
  Company Number: US-PFIZER INC-PV202200086556

PATIENT
  Age: 81 Year
  Sex: Female
  Weight: 54.88 kg

DRUGS (1)
  1. XELJANZ XR [Suspect]
     Active Substance: TOFACITINIB CITRATE
     Dosage: 11 MG, 1X/DAY

REACTIONS (10)
  - Loss of consciousness [Unknown]
  - Thinking abnormal [Unknown]
  - Cerebral disorder [Unknown]
  - Cognitive disorder [Unknown]
  - Fall [Unknown]
  - Head injury [Unknown]
  - Malaise [Unknown]
  - Illness [Unknown]
  - Dysphonia [Unknown]
  - Dyscalculia [Unknown]
